FAERS Safety Report 13468803 (Version 1)
Quarter: 2017Q2

REPORT INFORMATION
  Report Type: Report from Study
  Country: FR (occurrence: FR)
  Receive Date: 20170421
  Receipt Date: 20170421
  Transmission Date: 20170830
  Serious: Yes (Other)
  Sender: FDA-Public Use
  Company Number: FR-GILEAD-2017-0268051

PATIENT
  Sex: Male

DRUGS (6)
  1. IDELALISIB [Suspect]
     Active Substance: IDELALISIB
     Dosage: 200 MG, UNK
     Route: 065
     Dates: start: 20160705, end: 20161104
  2. IDELALISIB [Suspect]
     Active Substance: IDELALISIB
     Indication: CHRONIC LYMPHOCYTIC LEUKAEMIA
     Dosage: 150 MG, BID
     Route: 065
     Dates: start: 201601, end: 20160609
  3. ZELITREX [Concomitant]
     Active Substance: VALACYCLOVIR HYDROCHLORIDE
  4. IDELALISIB [Suspect]
     Active Substance: IDELALISIB
     Dosage: 200 MG, UNK
     Route: 065
     Dates: start: 20161125
  5. RITUXIMAB [Concomitant]
     Active Substance: RITUXIMAB
     Indication: CHRONIC LYMPHOCYTIC LEUKAEMIA
     Dosage: UNK
  6. WELLVONE [Concomitant]
     Active Substance: ATOVAQUONE

REACTIONS (4)
  - Febrile neutropenia [Unknown]
  - Lower respiratory tract infection bacterial [Unknown]
  - Febrile neutropenia [Unknown]
  - Campylobacter gastroenteritis [Unknown]

NARRATIVE: CASE EVENT DATE: 201606
